FAERS Safety Report 20993193 (Version 2)
Quarter: 2023Q4

REPORT INFORMATION
  Report Type: Spontaneous
  Country: CA (occurrence: CA)
  Receive Date: 20220622
  Receipt Date: 20231205
  Transmission Date: 20240109
  Serious: Yes (Hospitalization, Other)
  Sender: FDA-Public Use
  Company Number: CA-AstraZeneca-2020SE06809

PATIENT
  Age: 63 Year
  Sex: Female

DRUGS (18)
  1. ALVESCO [Suspect]
     Active Substance: CICLESONIDE
     Route: 055
  2. BUDESONIDE [Suspect]
     Active Substance: BUDESONIDE
     Route: 055
  3. SYMBICORT [Suspect]
     Active Substance: BUDESONIDE\FORMOTEROL FUMARATE DIHYDRATE
     Dosage: 8 DF, 200/6 MCG, 3 PUFFS Q.AM, 2 PUFFS AT LUNCH, 3 AT BEDTIME, EVERY DAY
     Route: 055
  4. IPRATROPIUM BROMIDE [Suspect]
     Active Substance: IPRATROPIUM BROMIDE\IPRATROPIUM BROMIDE ANHYDROUS
     Route: 055
     Dates: start: 20161212
  5. IPRATROPIUM BROMIDE [Suspect]
     Active Substance: IPRATROPIUM BROMIDE\IPRATROPIUM BROMIDE ANHYDROUS
     Route: 055
  6. MEPOLIZUMAB [Suspect]
     Active Substance: MEPOLIZUMAB
     Indication: Asthma
     Route: 042
     Dates: start: 20161213
  7. MEPOLIZUMAB [Suspect]
     Active Substance: MEPOLIZUMAB
     Route: 042
     Dates: start: 20161213
  8. SINGULAIR [Suspect]
     Active Substance: MONTELUKAST SODIUM
  9. VENTOLIN [Suspect]
     Active Substance: ALBUTEROL SULFATE
     Indication: Wheezing
     Route: 055
  10. VENTOLIN [Suspect]
     Active Substance: ALBUTEROL SULFATE
     Indication: Chest discomfort
  11. SPIRIVA [Suspect]
     Active Substance: TIOTROPIUM BROMIDE MONOHYDRATE
  12. BERINERT [Suspect]
     Active Substance: HUMAN C1-ESTERASE INHIBITOR
     Route: 042
  13. CINRYZE [Suspect]
     Active Substance: HUMAN C1-ESTERASE INHIBITOR
     Route: 042
  14. CONESTAT ALFA [Concomitant]
     Active Substance: CONESTAT ALFA
     Route: 042
  15. PANTOPRAZOLE [Concomitant]
     Active Substance: PANTOPRAZOLE
     Indication: Gastrooesophageal reflux disease
     Route: 048
  16. REACTINE [Concomitant]
  17. VALTREX [Concomitant]
     Active Substance: VALACYCLOVIR HYDROCHLORIDE
     Route: 048
  18. ZOPICLONE [Concomitant]
     Active Substance: ZOPICLONE

REACTIONS (21)
  - Emotional distress [Unknown]
  - Middle insomnia [Unknown]
  - Sleep disorder [Unknown]
  - Muscle spasms [Recovering/Resolving]
  - Blood immunoglobulin E increased [Unknown]
  - Chronic sinusitis [Unknown]
  - Eosinophilia [Unknown]
  - Ill-defined disorder [Unknown]
  - Laryngeal stenosis [Unknown]
  - Sinus disorder [Recovering/Resolving]
  - Skin lesion [Unknown]
  - Vocal cord dysfunction [Unknown]
  - Adverse drug reaction [Unknown]
  - Loss of personal independence in daily activities [Unknown]
  - Asthma [Unknown]
  - Chest discomfort [Unknown]
  - Dyspnoea [Unknown]
  - Obstructive airways disorder [Unknown]
  - Wheezing [Unknown]
  - Cough [Recovering/Resolving]
  - Dysphonia [Unknown]

NARRATIVE: CASE EVENT DATE: 20150901
